FAERS Safety Report 23970841 (Version 1)
Quarter: 2024Q2

REPORT INFORMATION
  Report Type: Other
  Country: GB (occurrence: GB)
  Receive Date: 20240613
  Receipt Date: 20240613
  Transmission Date: 20240715
  Serious: Yes (Other)
  Sender: FDA-Public Use
  Company Number: None

PATIENT
  Age: 3 Year
  Sex: Female

DRUGS (2)
  1. HYDROCORTISONE [Suspect]
     Active Substance: HYDROCORTISONE\HYDROCORTISONE ACETATE
     Indication: Eczema
     Dosage: UNK
     Route: 065
  2. EUMOVATE [Suspect]
     Active Substance: CLOBETASONE BUTYRATE
     Indication: Eczema
     Dosage: 1 DOSAGE FORM, EVERY 12 HRS
     Route: 065

REACTIONS (2)
  - Eye pain [Not Recovered/Not Resolved]
  - Rash erythematous [Not Recovered/Not Resolved]

NARRATIVE: CASE EVENT DATE: 20240525
